FAERS Safety Report 14662166 (Version 2)
Quarter: 2018Q2

REPORT INFORMATION
  Report Type: Report from Study
  Country: None (occurrence: KW)
  Receive Date: 20180321
  Receipt Date: 20180420
  Transmission Date: 20180711
  Serious: Yes (Death, Hospitalization)
  Sender: FDA-Public Use
  Company Number: KW-ABBVIE-18S-091-2290059-00

PATIENT
  Age: 44 Year
  Sex: Male

DRUGS (2)
  1. RIBAVIRIN. [Concomitant]
     Active Substance: RIBAVIRIN
     Indication: CHRONIC HEPATITIS C
     Route: 048
     Dates: start: 20171226, end: 20180301
  2. VIEKIRAX [Suspect]
     Active Substance: OMBITASVIR\PARITAPREVIR\RITONAVIR
     Indication: CHRONIC HEPATITIS C
     Route: 048
     Dates: start: 20171226, end: 20180307

REACTIONS (4)
  - Haemoglobin decreased [Recovered/Resolved]
  - Pneumonia [Fatal]
  - Haemoglobin decreased [Fatal]
  - Sepsis [Fatal]

NARRATIVE: CASE EVENT DATE: 20180228
